FAERS Safety Report 25086100 (Version 9)
Quarter: 2025Q3

REPORT INFORMATION
  Report Type: Spontaneous
  Country: US (occurrence: US)
  Receive Date: 20250317
  Receipt Date: 20250808
  Transmission Date: 20251020
  Serious: Yes (Other)
  Sender: PFIZER
  Company Number: US-PFIZER INC-202500057154

PATIENT
  Age: 47 Year
  Sex: Female

DRUGS (17)
  1. IBRANCE [Suspect]
     Active Substance: PALBOCICLIB
     Indication: Breast cancer female
     Route: 048
     Dates: start: 20250227, end: 2025
  2. IBRANCE [Suspect]
     Active Substance: PALBOCICLIB
     Route: 048
     Dates: start: 20250228
  3. ITOVEBI [Concomitant]
     Active Substance: INAVOLISIB
     Indication: Breast cancer female
     Dosage: 9 MG, DAILY
     Route: 048
     Dates: start: 20250311
  4. CALCIUM\CHOLECALCIFEROL [Concomitant]
     Active Substance: CALCIUM\CHOLECALCIFEROL
  5. CELEBREX [Concomitant]
     Active Substance: CELECOXIB
  6. FULVESTRANT [Concomitant]
     Active Substance: FULVESTRANT
     Dates: start: 20250311
  7. IBUPROFEN [Concomitant]
     Active Substance: IBUPROFEN
  8. KISQALI [Concomitant]
     Active Substance: RIBOCICLIB SUCCINATE
     Dosage: 200MG TAB 600MG/DAY PK
  9. LETROZOLE [Concomitant]
     Active Substance: LETROZOLE
  10. OMEPRAZOLE [Concomitant]
     Active Substance: OMEPRAZOLE
  11. TYLENOL [Concomitant]
     Active Substance: ACETAMINOPHEN
  12. VERZENIO [Concomitant]
     Active Substance: ABEMACICLIB
     Dates: start: 202503
  13. XGEVA [Concomitant]
     Active Substance: DENOSUMAB
  14. GOSERELIN [Concomitant]
     Active Substance: GOSERELIN
  15. TAMOXIFEN [Concomitant]
     Active Substance: TAMOXIFEN
  16. LORAZEPAM [Concomitant]
     Active Substance: LORAZEPAM
  17. GOSERELIN [Concomitant]
     Active Substance: GOSERELIN

REACTIONS (11)
  - Diabetes mellitus [Recovering/Resolving]
  - Neutropenia [Unknown]
  - Menopausal symptoms [Unknown]
  - Dry mouth [Unknown]
  - Tongue ulceration [Unknown]
  - Diarrhoea [Not Recovered/Not Resolved]
  - Stomatitis [Not Recovered/Not Resolved]
  - Hypertension [Not Recovered/Not Resolved]
  - Appetite disorder [Not Recovered/Not Resolved]
  - Fatigue [Unknown]
  - Dysgeusia [Unknown]

NARRATIVE: CASE EVENT DATE: 20250101
